FAERS Safety Report 9129017 (Version 1)
Quarter: 2013Q1

REPORT INFORMATION
  Report Type: Spontaneous
  Country: US (occurrence: US)
  Receive Date: 20130125
  Receipt Date: 20130125
  Transmission Date: 20140127
  Serious: No
  Sender: FDA-Public Use
  Company Number: US-BRACCO-008715

PATIENT
  Age: 36 Year
  Sex: Female
  Weight: 100 kg

DRUGS (3)
  1. ANTIHYPERTENSIVES [Concomitant]
  2. MULTIHANCE [Suspect]
     Indication: NUCLEAR MAGNETIC RESONANCE IMAGING BRAIN
     Route: 042
     Dates: start: 20121010, end: 20121010
  3. MULTIHANCE [Suspect]
     Indication: CONVULSION
     Route: 042
     Dates: start: 20121010, end: 20121010

REACTIONS (3)
  - Hypertension [Recovered/Resolved]
  - Nausea [Recovered/Resolved]
  - Vomiting [Recovered/Resolved]
